FAERS Safety Report 5870797-2 (Version None)
Quarter: 2008Q3

REPORT INFORMATION
  Report Type: 
  Country: None (occurrence: None)
  Receive Date: 20080904
  Receipt Date: 20080901
  Transmission Date: 20090109
  Serious: Yes (Hospitalization)
  Sender: FDA-Public Use
  Company Number: FR-AVENTIS-200813190FR

PATIENT
  Age: 82 Year
  Sex: Female

DRUGS (10)
  1. ARAVA [Suspect]
     Indication: RHEUMATOID ARTHRITIS
     Route: 048
     Dates: start: 20080209, end: 20080101
  2. IMUREL                             /00001501/ [Concomitant]
  3. HEPARIN [Concomitant]
  4. ROCEPHIN [Concomitant]
  5. CORTANCYL [Concomitant]
  6. KARDEGIC                           /00002703/ [Concomitant]
  7. LOPRESSOR [Concomitant]
  8. INIPOMP                            /01263201/ [Concomitant]
  9. TAHOR [Concomitant]
  10. SKENAN [Concomitant]

REACTIONS (6)
  - ALANINE AMINOTRANSFERASE INCREASED [None]
  - ASPARTATE AMINOTRANSFERASE INCREASED [None]
  - BLOOD CREATINE PHOSPHOKINASE INCREASED [None]
  - BLOOD LACTATE DEHYDROGENASE INCREASED [None]
  - CONFUSIONAL STATE [None]
  - HEPATIC FAILURE [None]
